FAERS Safety Report 24009749 (Version 1)
Quarter: 2024Q2

REPORT INFORMATION
  Report Type: Spontaneous
  Country: US (occurrence: US)
  Receive Date: 20240625
  Receipt Date: 20240625
  Transmission Date: 20240716
  Serious: Yes (Death, Hospitalization)
  Sender: FDA-Public Use
  Company Number: US-MYLANLABS-2024M1057459

PATIENT
  Age: 33 Year
  Sex: Male

DRUGS (2)
  1. HEPARIN [Suspect]
     Active Substance: HEPARIN SODIUM
     Indication: Pulmonary embolism
     Dosage: UNK
     Route: 065
  2. DORNASE ALFA [Suspect]
     Active Substance: DORNASE ALFA
     Indication: Pneumonia necrotising
     Dosage: UNK
     Route: 065

REACTIONS (1)
  - Treatment failure [Fatal]
